FAERS Safety Report 25995595 (Version 1)
Quarter: 2025Q4

REPORT INFORMATION
  Report Type: Spontaneous
  Country: EU (occurrence: EU)
  Receive Date: 20251104
  Receipt Date: 20251104
  Transmission Date: 20260118
  Serious: Yes (Hospitalization, Other)
  Sender: AUROBINDO
  Company Number: EU-AFSSAPS-AN2025001338

PATIENT
  Age: 82 Year
  Sex: Male

DRUGS (7)
  1. OXALIPLATIN [Suspect]
     Active Substance: OXALIPLATIN
     Indication: Colon cancer stage 0
     Dosage: 130 MILLIGRAM, CYCLICAL (C18)
     Route: 042
     Dates: start: 20250922, end: 20250922
  2. ONDANSETRON [Suspect]
     Active Substance: ONDANSETRON
     Indication: Chemotherapy side effect prophylaxis
     Dosage: 8 MILLIGRAM, CYCLICAL
     Route: 042
     Dates: start: 20250922, end: 20250922
  3. VECTIBIX [Suspect]
     Active Substance: PANITUMUMAB
     Indication: Colon cancer stage 0
     Dosage: 480 MILLIGRAM, CYCLICAL (C18)
     Route: 042
     Dates: start: 20250922, end: 20250922
  4. SOLU-MEDROL [Suspect]
     Active Substance: METHYLPREDNISOLONE SODIUM SUCCINATE
     Indication: Chemotherapy side effect prophylaxis
     Dosage: 40 MILLIGRAM, CYCLICAL
     Route: 042
     Dates: start: 20250922, end: 20250922
  5. POLARAMINE [Suspect]
     Active Substance: DEXCHLORPHENIRAMINE MALEATE
     Indication: Chemotherapy side effect prophylaxis
     Dosage: 5 MILLIGRAM, CYCLICAL
     Route: 042
     Dates: start: 20250922, end: 20250922
  6. FLUOROURACIL [Suspect]
     Active Substance: FLUOROURACIL
     Indication: Colon cancer stage 0
     Dosage: 400 MILLIGRAM, CYCLICAL (C18)
     Route: 042
     Dates: start: 20250922, end: 20250922
  7. LEVOLEUCOVORIN CALCIUM [Suspect]
     Active Substance: LEVOLEUCOVORIN CALCIUM
     Indication: Colon cancer stage 0
     Dosage: 400 MILLIGRAM, CYCLICAL (C18)
     Route: 042
     Dates: start: 20250922, end: 20250922

REACTIONS (1)
  - Immune thrombocytopenia [Recovered/Resolved]

NARRATIVE: CASE EVENT DATE: 20250923
